FAERS Safety Report 23414149 (Version 1)
Quarter: 2024Q1

REPORT INFORMATION
  Report Type: Spontaneous
  Country: US (occurrence: US)
  Receive Date: 20240117
  Receipt Date: 20240117
  Transmission Date: 20240409
  Serious: No
  Sender: FDA-Public Use
  Company Number: US-002147023-NVSC2024US010551

PATIENT
  Sex: Male
  Weight: 71.655 kg

DRUGS (3)
  1. EVEROLIMUS [Suspect]
     Active Substance: EVEROLIMUS
     Indication: Product used for unknown indication
     Dosage: 5 MG
     Route: 065
  2. LENVIMA [Suspect]
     Active Substance: LENVATINIB
     Indication: Renal cancer
     Dosage: 10 MG, QD
     Route: 048
     Dates: start: 20231227
  3. TAMSULOSIN [Suspect]
     Active Substance: TAMSULOSIN
     Indication: Product used for unknown indication
     Dosage: 0.4 MG
     Route: 065

REACTIONS (3)
  - Somnolence [Unknown]
  - Gait disturbance [Unknown]
  - Pain [Unknown]
